FAERS Safety Report 18108327 (Version 4)
Quarter: 2020Q3

REPORT INFORMATION
  Report Type: Spontaneous
  Country: US (occurrence: US)
  Receive Date: 20200804
  Receipt Date: 20200907
  Transmission Date: 20201103
  Serious: Yes (Hospitalization, Other)
  Sender: FDA-Public Use
  Company Number: US-VELOXIS PHARMACEUTICALS-2020VELUS-000674

PATIENT
  Age: 40 Year
  Sex: Female

DRUGS (6)
  1. METHYLPREDNISOLONE. [Concomitant]
     Active Substance: METHYLPREDNISOLONE
     Indication: IMMUNOSUPPRESSANT DRUG THERAPY
     Dosage: 4 MILLIGRAM, BID
  2. ENVARSUS XR [Suspect]
     Active Substance: TACROLIMUS
     Indication: PROPHYLAXIS AGAINST GRAFT VERSUS HOST DISEASE
     Dosage: 1 MILLIGRAM, BID
     Route: 065
  3. ENVARSUS XR [Suspect]
     Active Substance: TACROLIMUS
     Indication: IMMUNOSUPPRESSANT DRUG THERAPY
     Dosage: 0.5 MILLIGRAM, BID
  4. ATENOLOL. [Concomitant]
     Active Substance: ATENOLOL
     Indication: SINUS TACHYCARDIA
     Dosage: 12.5 MILLIGRAM, QD
  5. TRIMETHOPRIM SULFAMETHOXAZOLE [Concomitant]
     Active Substance: SULFAMETHOXAZOLE\TRIMETHOPRIM
     Indication: PROPHYLAXIS
     Dosage: SINGLE STRENGTH
  6. ACICLOVIR [Concomitant]
     Active Substance: ACYCLOVIR
     Indication: PROPHYLAXIS
     Dosage: 400 MILLIGRAM, Q12H

REACTIONS (21)
  - Bronchitis [Recovering/Resolving]
  - Leukocytosis [Recovered/Resolved]
  - Malnutrition [Recovered/Resolved]
  - Electrolyte imbalance [Recovering/Resolving]
  - Somnolence [Recovered/Resolved]
  - Muscle spasms [Recovered/Resolved]
  - Off label use [Unknown]
  - Pneumonia [Recovered/Resolved]
  - Hyperglycaemia [Recovered/Resolved]
  - Acute kidney injury [Recovered/Resolved]
  - Mycobacterium abscessus infection [Recovered/Resolved]
  - Hypertension [Recovered/Resolved]
  - Hyperkalaemia [Recovering/Resolving]
  - Encephalopathy [Recovering/Resolving]
  - Immunosuppressant drug level increased [Recovered/Resolved]
  - Sinus tachycardia [Recovered/Resolved]
  - Respiratory failure [Recovered/Resolved]
  - Confusional state [Recovered/Resolved]
  - Pseudomonas infection [Recovered/Resolved]
  - Toxicity to various agents [Recovered/Resolved]
  - Sepsis [Recovering/Resolving]
